FAERS Safety Report 16930304 (Version 1)
Quarter: 2019Q4

REPORT INFORMATION
  Report Type: Report from Study
  Country: IT (occurrence: IT)
  Receive Date: 20191017
  Receipt Date: 20191017
  Transmission Date: 20200122
  Serious: Yes (Other)
  Sender: FDA-Public Use
  Company Number: IT-TEVA-2019-IT-1122289

PATIENT
  Age: 58 Year
  Sex: Male

DRUGS (18)
  1. METOPROLOL. [Concomitant]
     Active Substance: METOPROLOL
  2. ACETYLSALICYLIC ACID [Concomitant]
     Active Substance: ASPIRIN
  3. MAVIRET 100 MG/40 MG FILM-COATED TABLETS [Concomitant]
  4. SPIRIVA [Concomitant]
     Active Substance: TIOTROPIUM BROMIDE MONOHYDRATE
  5. DIAZEPAM. [Suspect]
     Active Substance: DIAZEPAM
     Route: 048
     Dates: start: 20180605, end: 20190605
  6. CONTRAMAL [Concomitant]
     Active Substance: TRAMADOL HYDROCHLORIDE
  7. LENIRIT [Concomitant]
  8. APIDRA [Concomitant]
     Active Substance: INSULIN GLULISINE
  9. ANAFRANIL [Concomitant]
     Active Substance: CLOMIPRAMINE HYDROCHLORIDE
  10. DIBASE [Concomitant]
     Active Substance: CHOLECALCIFEROL
  11. LANTUS [Concomitant]
     Active Substance: INSULIN GLARGINE
  12. SERETIDE [Concomitant]
     Active Substance: FLUTICASONE PROPIONATE\SALMETEROL XINAFOATE
  13. XATRAL [Concomitant]
     Active Substance: ALFUZOSIN
  14. ANTRA [Concomitant]
     Active Substance: OMEPRAZOLE
  15. GABAPENTIN. [Concomitant]
     Active Substance: GABAPENTIN
  16. METFORMIN [Concomitant]
     Active Substance: METFORMIN HYDROCHLORIDE
  17. TAVOR (LORAZEPAM) [Suspect]
     Active Substance: LORAZEPAM
     Route: 048
     Dates: start: 20180605, end: 20190605
  18. VENTOLIN [Concomitant]
     Active Substance: ALBUTEROL SULFATE

REACTIONS (1)
  - Sopor [Recovered/Resolved]

NARRATIVE: CASE EVENT DATE: 20190605
